FAERS Safety Report 10285246 (Version 1)
Quarter: 2014Q3

REPORT INFORMATION
  Report Type: Spontaneous
  Country: CN (occurrence: CN)
  Receive Date: 20140708
  Receipt Date: 20140708
  Transmission Date: 20150326
  Serious: Yes (Other)
  Sender: FDA-Public Use
  Company Number: CN-GILEAD-2014-0107941

PATIENT
  Sex: Male

DRUGS (2)
  1. ADEFOVIR DIPIVOXIL. [Suspect]
     Active Substance: ADEFOVIR DIPIVOXIL
     Indication: HEPATITIS B
     Dosage: 10UG PER DAY
     Route: 048
     Dates: start: 20130703, end: 20131001
  2. LAMIVUDINE. [Concomitant]
     Active Substance: LAMIVUDINE
     Indication: HEPATITIS B
     Dosage: 100UG PER DAY
     Route: 048
     Dates: start: 20130703, end: 20131001

REACTIONS (4)
  - Condition aggravated [Recovering/Resolving]
  - Myalgia [Recovering/Resolving]
  - Musculoskeletal discomfort [Recovering/Resolving]
  - Rhabdomyolysis [Recovering/Resolving]
